FAERS Safety Report 8003430-4 (Version None)
Quarter: 2011Q4

REPORT INFORMATION
  Report Type: 
  Country: None (occurrence: None)
  Receive Date: 20111222
  Receipt Date: 20111222
  Transmission Date: 20120403
  Serious: Yes (Hospitalization)
  Sender: FDA-Public Use
  Company Number: None

PATIENT
  Sex: Female
  Weight: 65.2 kg

DRUGS (10)
  1. POTASSIUM CHLORIDE [Concomitant]
     Route: 048
  2. PRADAXA [Suspect]
     Indication: THROMBOSIS PROPHYLAXIS
     Dosage: ONE CAPSULE
     Route: 048
     Dates: start: 20111001, end: 20111110
  3. PRADAXA [Suspect]
     Indication: ATRIAL FIBRILLATION
     Dosage: ONE CAPSULE
     Route: 048
     Dates: start: 20111001, end: 20111110
  4. PRADAXA [Suspect]
     Indication: CEREBROVASCULAR ACCIDENT PROPHYLAXIS
     Dosage: ONE CAPSULE
     Route: 048
     Dates: start: 20111001, end: 20111110
  5. DILTIAZEM HCL [Concomitant]
     Route: 048
  6. SYNTHROID [Concomitant]
     Route: 048
  7. VITAMIN D [Concomitant]
     Route: 048
  8. LOSARTAN POTASSIUM [Concomitant]
     Route: 048
  9. METOLAZONE [Concomitant]
     Route: 048
  10. LASIX [Concomitant]
     Route: 048

REACTIONS (1)
  - GASTROINTESTINAL HAEMORRHAGE [None]
